FAERS Safety Report 11796058 (Version 1)
Quarter: 2015Q4

REPORT INFORMATION
  Report Type: Spontaneous
  Country: US (occurrence: None)
  Receive Date: 20151202
  Receipt Date: 20151202
  Transmission Date: 20160305
  Serious: Yes (Death)
  Sender: FDA-Public Use
  Company Number: None

PATIENT
  Age: 52 Year
  Sex: Female

DRUGS (5)
  1. FEMARA [Concomitant]
     Active Substance: LETROZOLE
  2. ZOLADEX [Concomitant]
     Active Substance: GOSERELIN ACETATE
  3. XGEVA [Concomitant]
     Active Substance: DENOSUMAB
  4. DEXAMETHASON [Concomitant]
     Active Substance: DEXAMETHASONE
  5. AFINITOR [Suspect]
     Active Substance: EVEROLIMUS
     Indication: BREAST CANCER
     Route: 048
     Dates: start: 201506, end: 20151124

REACTIONS (1)
  - Septic shock [None]

NARRATIVE: CASE EVENT DATE: 20151124
